FAERS Safety Report 24266446 (Version 1)
Quarter: 2024Q3

REPORT INFORMATION
  Report Type: Spontaneous
  Country: US (occurrence: None)
  Receive Date: 20240830
  Receipt Date: 20240830
  Transmission Date: 20241016
  Serious: No
  Sender: AXSOME THERAPEUTICS
  Company Number: US-ARIS GLOBAL-AXS202406-000793

PATIENT
  Age: 32 Year
  Sex: Female

DRUGS (2)
  1. AUVELITY [Suspect]
     Active Substance: BUPROPION HYDROCHLORIDE\DEXTROMETHORPHAN HYDROBROMIDE
     Indication: Post-traumatic stress disorder
     Dosage: UNK
     Route: 065
  2. AUVELITY [Suspect]
     Active Substance: BUPROPION HYDROCHLORIDE\DEXTROMETHORPHAN HYDROBROMIDE
     Indication: Sacroiliac joint dysfunction

REACTIONS (4)
  - Symptom recurrence [Unknown]
  - Therapy interrupted [Unknown]
  - Product use issue [Unknown]
  - Product use in unapproved indication [Unknown]
